FAERS Safety Report 8965966 (Version 1)
Quarter: 2012Q4

REPORT INFORMATION
  Report Type: 
  Country: US (occurrence: US)
  Receive Date: 20121217
  Receipt Date: 20121217
  Transmission Date: 20130627
  Serious: No
  Sender: FDA-Public Use
  Company Number: US-ABBOTT-12P-163-0950021-00

PATIENT
  Sex: Female
  Weight: 88.53 kg

DRUGS (7)
  1. TRILIPIX [Suspect]
     Indication: BLOOD TRIGLYCERIDES INCREASED
     Dates: start: 201111
  2. ISOSORBIDE [Suspect]
     Indication: BLOOD PRESSURE
     Dates: end: 201204
  3. NORVASC [Suspect]
     Indication: BLOOD PRESSURE
     Dates: end: 201206
  4. PLAVIX [Concomitant]
     Indication: STENT PLACEMENT
  5. UNKNOWN MEDICATION [Concomitant]
     Indication: DIABETES MELLITUS
  6. QUINAPRIL [Concomitant]
     Indication: BLOOD PRESSURE
  7. CRESTOR [Concomitant]
     Indication: BLOOD CHOLESTEROL

REACTIONS (9)
  - Diabetes mellitus inadequate control [Not Recovered/Not Resolved]
  - Abdominal distension [Not Recovered/Not Resolved]
  - Pain of skin [Not Recovered/Not Resolved]
  - Drug level above therapeutic [Unknown]
  - Pruritus [Not Recovered/Not Resolved]
  - Rash [Not Recovered/Not Resolved]
  - Arthropod bite [Unknown]
  - Acarodermatitis [Unknown]
  - Adverse drug reaction [Unknown]
